FAERS Safety Report 6625709-0 (Version None)
Quarter: 2010Q1

REPORT INFORMATION
  Report Type: 
  Country: None (occurrence: None)
  Receive Date: 20100310
  Receipt Date: 20100304
  Transmission Date: 20100710
  Serious: Yes (Hospitalization)
  Sender: FDA-Public Use
  Company Number: US-B.I. PHARMACEUTICALS,INC./RIDGEFIELD-2010-BP-01767PF

PATIENT
  Sex: Male

DRUGS (42)
  1. SPIRIVA [Suspect]
     Indication: INTERSTITIAL LUNG DISEASE
     Dosage: 18 MCG
     Route: 055
     Dates: start: 20060101
  2. SPIRIVA [Suspect]
     Indication: CHRONIC OBSTRUCTIVE PULMONARY DISEASE
  3. LYRICA [Concomitant]
     Dosage: 450 MG
  4. LANTUS [Concomitant]
     Dosage: 45 U
  5. PULMICORT [Concomitant]
  6. ALBUTEROL SULFATE AUTOHALER [Concomitant]
  7. BROVANA [Concomitant]
  8. ALVESCO [Concomitant]
  9. NADOLOL [Concomitant]
     Dosage: 40 MG
  10. DILTIAZEM HCL [Concomitant]
  11. OMEPRAZOLE [Concomitant]
     Dosage: 40 MG
  12. RANITIDINE [Concomitant]
     Dosage: 600 MG
  13. FUROSEMIDE [Concomitant]
     Dosage: 80 MG
  14. AMILORIDE HCL AND HYDROCHLOROTHIAZIDE [Concomitant]
  15. AMILORIDE HCL AND HYDROCHLOROTHIAZIDE [Concomitant]
     Dates: start: 20090731
  16. EA POTASSIUM CL CR [Concomitant]
     Dosage: 60 MEQ
  17. LEVOTHYROXINE [Concomitant]
     Dosage: 50 MCG
  18. AMPHETAMINE AND DEXTROAMPHETAMINE SALTS [Concomitant]
     Dosage: 40 MG
  19. SKELAXIN [Concomitant]
     Dosage: 2400 MG
  20. ASCORBIC ACID [Concomitant]
     Dosage: 1000 MG
  21. EA BUPROPION SR [Concomitant]
     Dosage: 150 MG
  22. EA RISPERIDONE [Concomitant]
     Dosage: 4 MG
  23. OXYCODONE HCL [Concomitant]
     Dosage: 120 MG
  24. FERROUS SULFATE TAB [Concomitant]
     Dosage: 325 MG
  25. CLONAZEPAM [Concomitant]
  26. TESTOSTERONE [Concomitant]
  27. MIRALAX [Concomitant]
  28. VITAMIN E [Concomitant]
     Dosage: 1000 U
  29. GLUCOSAMINE/CHONDROITIN+SODIUM [Concomitant]
  30. ONE SOURCE ADVANCED MULTIVITAMIN + MINERAL/COQ10/ANTIOXIDANTS [Concomitant]
  31. VITAMIN B12 /CALCIUM/PHOSPHORUS [Concomitant]
  32. CALCIUM/VITAMIN D [Concomitant]
  33. ZINC [Concomitant]
     Dosage: 50 MG
  34. CELL FOOD DIETARY SUPPLEMENT [Concomitant]
  35. CINNAMON/CHROMIUM [Concomitant]
  36. SAW PALMETTO [Concomitant]
     Dosage: 1500 MG
  37. LOVAZA [Concomitant]
     Dosage: 3000 MG
  38. MAGNESIUM OXIDE [Concomitant]
     Dosage: 400 MG
  39. MILK THISTLE [Concomitant]
     Dosage: 4000 MG
  40. ST. JOHN'S WORT [Concomitant]
     Dosage: 900 MG
  41. GINSENG [Concomitant]
     Dosage: 1200 MG
  42. AMBERTOSE [Concomitant]

REACTIONS (7)
  - ARTHROPATHY [None]
  - DIABETES MELLITUS [None]
  - HEPATITIS C [None]
  - OESOPHAGEAL HAEMORRHAGE [None]
  - OSTEONECROSIS [None]
  - PNEUMONIA [None]
  - VARICES OESOPHAGEAL [None]
